FAERS Safety Report 17391732 (Version 1)
Quarter: 2020Q1

REPORT INFORMATION
  Report Type: Spontaneous
  Country: CA (occurrence: CA)
  Receive Date: 20200207
  Receipt Date: 20200207
  Transmission Date: 20200409
  Serious: Yes (Other)
  Sender: FDA-Public Use
  Company Number: CA-TEVA-2020-CA-1180742

PATIENT
  Age: 53 Year
  Sex: Male

DRUGS (4)
  1. DENOSUMAB [Suspect]
     Active Substance: DENOSUMAB
     Indication: HYPERCALCAEMIA
     Route: 058
  2. ZOLEDRONIC ACID [Suspect]
     Active Substance: ZOLEDRONIC ACID
     Indication: HYPERCALCAEMIA
     Route: 042
  3. LANREOTIDE [Concomitant]
     Active Substance: LANREOTIDE
     Indication: PANCREATIC NEUROENDOCRINE TUMOUR
     Route: 058
  4. PAMIDRONATE DISODIUM. [Suspect]
     Active Substance: PAMIDRONATE DISODIUM
     Indication: HYPERCALCAEMIA
     Route: 042

REACTIONS (1)
  - Hypercalcaemia [Unknown]
